FAERS Safety Report 25147297 (Version 1)
Quarter: 2025Q2

REPORT INFORMATION
  Report Type: Report from Study
  Country: CA (occurrence: CA)
  Receive Date: 20250401
  Receipt Date: 20250401
  Transmission Date: 20250716
  Serious: Yes (Hospitalization, Other)
  Sender: TAIHO ONCOLOGY INC
  Company Number: CA-TAIHOP-2025-001585

PATIENT
  Age: 67 Year
  Sex: Female

DRUGS (4)
  1. INQOVI [Suspect]
     Active Substance: CEDAZURIDINE\DECITABINE
     Indication: Myelodysplastic syndrome
     Dosage: 135 MG (DECITABINE 35 MG + CEDAZURIDINE 100 MG) 3 PILLS ONCE DAILY ON MONDAY, WEDNESDAY, AND FRIDAY;
     Route: 048
     Dates: start: 20220815, end: 202309
  2. INQOVI [Suspect]
     Active Substance: CEDAZURIDINE\DECITABINE
     Dosage: 135 MG (DECITABINE 35 MG + CEDAZURIDINE 100 MG); DAYS 1, 3, 5; CYCLE UNKNOWN
     Route: 048
     Dates: start: 20240212
  3. INQOVI [Suspect]
     Active Substance: CEDAZURIDINE\DECITABINE
     Dosage: 135 MG (DECITABINE 35 MG + CEDAZURIDINE 100 MG); 2 PILLS; CYCLE UNKNOWN
     Route: 048
     Dates: end: 202410
  4. INQOVI [Suspect]
     Active Substance: CEDAZURIDINE\DECITABINE
     Route: 048
     Dates: start: 202311

REACTIONS (7)
  - Cytopenia [Unknown]
  - Neutropenia [Unknown]
  - Sepsis [Unknown]
  - Thrombocytopenia [Unknown]
  - Blood product transfusion dependent [Unknown]
  - Localised infection [Unknown]
  - Inappropriate schedule of product administration [Unknown]

NARRATIVE: CASE EVENT DATE: 20230901
